FAERS Safety Report 7012989-5 (Version None)
Quarter: 2010Q3

REPORT INFORMATION
  Report Type: 
  Country: None (occurrence: None)
  Receive Date: 20100924
  Receipt Date: 20100914
  Transmission Date: 20110219
  Serious: Yes (Other)
  Sender: FDA-Public Use
  Company Number: US-ABBOTT-10P-163-0624789-00

PATIENT
  Sex: Female
  Weight: 50.848 kg

DRUGS (25)
  1. HUMIRA [Suspect]
     Indication: RHEUMATOID ARTHRITIS
     Dates: start: 20030601
  2. HUMIRA [Suspect]
     Dates: start: 20070101, end: 20100101
  3. PLAQUENIL [Concomitant]
     Indication: RHEUMATOID ARTHRITIS
     Dosage: 1000MG DAILY
  4. PLAQUENIL [Concomitant]
     Indication: SJOGREN'S SYNDROME
  5. RELAFEN [Concomitant]
     Indication: RHEUMATOID ARTHRITIS
     Dosage: 750 MG DAILY
  6. VOLTAREN [Concomitant]
     Indication: RHEUMATOID ARTHRITIS
  7. LIPITOR [Concomitant]
     Indication: BLOOD CHOLESTEROL INCREASED
  8. PREVACID [Concomitant]
     Indication: GASTROOESOPHAGEAL REFLUX DISEASE
  9. PREVACID [Concomitant]
     Indication: GASTRITIS
  10. FAMOTIDINE [Concomitant]
     Indication: GASTROOESOPHAGEAL REFLUX DISEASE
  11. FAMOTIDINE [Concomitant]
     Indication: GASTRITIS
  12. LEVOTHYROXINE SODIUM [Concomitant]
     Indication: HYPOTHYROIDISM
  13. CYTOMEL [Concomitant]
     Indication: HYPOTHYROIDISM
  14. CARDIZEM [Concomitant]
     Indication: MIGRAINE PROPHYLAXIS
  15. LAMICTAL [Concomitant]
     Indication: MIGRAINE PROPHYLAXIS
  16. RESTASIS [Concomitant]
     Indication: SJOGREN'S SYNDROME
     Dosage: 1 DROP EACH EYE TWICE A DAY
  17. CODEINE SULFATE [Concomitant]
     Indication: MIGRAINE
     Dosage: 30/60 MG AS NEEDED
  18. ZOFRAN [Concomitant]
     Indication: MIGRAINE
     Dosage: 40 MG DAILY AS NEEDED
  19. FLONASE [Concomitant]
     Indication: HYPERSENSITIVITY
     Dosage: 2 PUFFS EACH NOSTRIL 2X DAY
  20. ADVAIR DISKUS 100/50 [Concomitant]
     Indication: ASTHMA
  21. PROAIR HFA [Concomitant]
     Indication: ASTHMA
  22. PHENOBARBITAL TAB [Concomitant]
     Indication: INSOMNIA
  23. SOMNOTE [Concomitant]
     Indication: INSOMNIA
     Dosage: 1000/1750 MG DAILY
  24. INDERAL [Concomitant]
     Indication: ESSENTIAL TREMOR
     Dosage: 30/35 MG AS NEEDED
  25. VITAMINS [Concomitant]
     Indication: PRODUCT USED FOR UNKNOWN INDICATION
     Dosage: DAILY

REACTIONS (12)
  - ARTHROPATHY [None]
  - COLOUR BLINDNESS [None]
  - IRON DEFICIENCY ANAEMIA [None]
  - JOINT SWELLING [None]
  - METAMORPHOPSIA [None]
  - OPTIC NEURITIS [None]
  - OSTEOARTHRITIS [None]
  - RETINAL DISORDER [None]
  - SCAR [None]
  - SINUSITIS [None]
  - VITREOUS DISORDER [None]
  - VITREOUS FLOATERS [None]
